FAERS Safety Report 6709254-X (Version None)
Quarter: 2010Q2

REPORT INFORMATION
  Report Type: 
  Country: None (occurrence: None)
  Receive Date: 20100504
  Receipt Date: 20100427
  Transmission Date: 20101027
  Serious: Yes (Other)
  Sender: FDA-Public Use
  Company Number: US-WYE-H14837910

PATIENT
  Age: 60 Year
  Sex: Male

DRUGS (1)
  1. TORISEL [Suspect]
     Dosage: NOT PROVIDED
     Route: 065

REACTIONS (3)
  - ISCHAEMIA [None]
  - MYOCLONIC EPILEPSY [None]
  - POST-ANOXIC MYOCLONUS [None]
